FAERS Safety Report 14456623 (Version 6)
Quarter: 2018Q2

REPORT INFORMATION
  Report Type: Report from Study
  Country: None (occurrence: US)
  Receive Date: 20180130
  Receipt Date: 20180427
  Transmission Date: 20180711
  Serious: Yes (Hospitalization, Other)
  Sender: FDA-Public Use
  Company Number: US-ABBVIE-18K-163-2238584-00

PATIENT
  Age: 79 Year
  Sex: Female
  Weight: 54.48 kg

DRUGS (7)
  1. HUMIRA [Suspect]
     Active Substance: ADALIMUMAB
     Route: 058
     Dates: start: 201803
  2. VITAMIN B12 [Concomitant]
     Active Substance: CYANOCOBALAMIN
     Indication: PRODUCT USED FOR UNKNOWN INDICATION
  3. TRAMADOL. [Concomitant]
     Active Substance: TRAMADOL
     Indication: PRODUCT USED FOR UNKNOWN INDICATION
  4. ELIQUIS [Concomitant]
     Active Substance: APIXABAN
     Indication: ATRIAL FIBRILLATION
     Dates: end: 201801
  5. CARDIZEM [Concomitant]
     Active Substance: DILTIAZEM HYDROCHLORIDE
     Indication: ATRIAL FIBRILLATION
  6. HUMIRA [Suspect]
     Active Substance: ADALIMUMAB
     Indication: CROHN^S DISEASE
     Route: 058
     Dates: start: 2014, end: 201712
  7. IRON [Concomitant]
     Active Substance: IRON
     Indication: PRODUCT USED FOR UNKNOWN INDICATION

REACTIONS (19)
  - Gastrointestinal arteriovenous malformation [Recovered/Resolved]
  - Haemorrhage [Recovered/Resolved]
  - Back pain [Unknown]
  - Dysstasia [Recovered/Resolved]
  - Haemoglobin decreased [Recovered/Resolved]
  - Staphylococcal infection [Recovered/Resolved]
  - Haemorrhage [Recovering/Resolving]
  - Atrial fibrillation [Recovered/Resolved]
  - Cardiac murmur [Unknown]
  - Feeling hot [Recovered/Resolved]
  - Muscular weakness [Recovered/Resolved]
  - Blood count abnormal [Not Recovered/Not Resolved]
  - Blood potassium decreased [Recovered/Resolved]
  - Erythema [Recovered/Resolved]
  - Clostridial sepsis [Unknown]
  - Clostridium difficile infection [Recovered/Resolved]
  - Asthenia [Recovered/Resolved]
  - Heart rate decreased [Recovered/Resolved]
  - Allergic transfusion reaction [Recovered/Resolved]

NARRATIVE: CASE EVENT DATE: 2015
